FAERS Safety Report 23218913 (Version 3)
Quarter: 2023Q4

REPORT INFORMATION
  Report Type: Report from Study
  Country: CN (occurrence: CN)
  Receive Date: 20231122
  Receipt Date: 20231212
  Transmission Date: 20240109
  Serious: Yes (Hospitalization, Other)
  Sender: FDA-Public Use
  Company Number: CN-SUN PHARMACEUTICAL INDUSTRIES LTD-2023R1-418808

PATIENT
  Age: 57 Year
  Sex: Male
  Weight: 60 kg

DRUGS (1)
  1. SONIDEGIB [Suspect]
     Active Substance: SONIDEGIB
     Indication: Basal cell carcinoma
     Dosage: 200 MILLIGRAM, QD
     Route: 048
     Dates: start: 20230708, end: 20231112

REACTIONS (11)
  - Dyspepsia [Not Recovered/Not Resolved]
  - Abdominal distension [Unknown]
  - Regurgitation [Unknown]
  - Constipation [Recovered/Resolved]
  - Abdominal pain [Unknown]
  - Alopecia [Unknown]
  - Decreased appetite [Unknown]
  - Alopecia areata [Unknown]
  - Functional gastrointestinal disorder [Unknown]
  - Abdominal distension [Recovered/Resolved]
  - Flatulence [Recovered/Resolved]

NARRATIVE: CASE EVENT DATE: 20231106
